FAERS Safety Report 10844767 (Version 1)
Quarter: 2015Q1

REPORT INFORMATION
  Report Type: Spontaneous
  Country: EG (occurrence: EG)
  Receive Date: 20150220
  Receipt Date: 20150220
  Transmission Date: 20150721
  Serious: Yes (Life-Threatening)
  Sender: FDA-Public Use
  Company Number: EG-PFIZER INC-2015065024

PATIENT
  Age: 35 Year
  Sex: Male

DRUGS (3)
  1. VITAMIN K [Suspect]
     Active Substance: PHYTONADIONE
     Dosage: UNK
     Route: 042
  2. CONTROLOC [Suspect]
     Active Substance: PANTOPRAZOLE SODIUM
     Dosage: UNK
     Route: 042
  3. CEFTRIAXON [Suspect]
     Active Substance: CEFTRIAXONE
     Dosage: UNK
     Route: 042

REACTIONS (2)
  - Incorrect drug administration duration [Unknown]
  - Respiratory arrest [Recovered/Resolved]
